FAERS Safety Report 9771189 (Version 1)
Quarter: 2013Q4

REPORT INFORMATION
  Report Type: Report from Study
  Country: IT (occurrence: CG)
  Receive Date: 20131218
  Receipt Date: 20131218
  Transmission Date: 20140711
  Serious: Yes (Other)
  Sender: FDA-Public Use
  Company Number: CG-B.I. PHARMACEUTICALS,INC./RIDGEFIELD-2013-BI-41900GD

PATIENT
  Sex: 0

DRUGS (6)
  1. VIRAMUNE [Suspect]
     Indication: EXPOSURE DURING PREGNANCY
     Route: 064
  2. VIRAMUNE [Suspect]
     Indication: PROPHYLAXIS AGAINST HIV INFECTION
     Route: 048
  3. ZIDOVUDINE [Suspect]
     Indication: EXPOSURE DURING PREGNANCY
     Route: 064
  4. ZIDOVUDINE [Suspect]
     Indication: PROPHYLAXIS AGAINST HIV INFECTION
     Route: 064
  5. ZIDOVUDINE [Suspect]
     Dosage: 8 MG/KG
  6. LAMIVUDINE [Suspect]
     Indication: EXPOSURE DURING PREGNANCY
     Route: 064

REACTIONS (3)
  - Low birth weight baby [Unknown]
  - Premature baby [Unknown]
  - Human immunodeficiency virus transmission [Unknown]
